FAERS Safety Report 9587180 (Version 1)
Quarter: 2013Q4

REPORT INFORMATION
  Report Type: Report from Study
  Country: None (occurrence: US)
  Receive Date: 20131003
  Receipt Date: 20131003
  Transmission Date: 20140711
  Serious: Yes (Hospitalization)
  Sender: FDA-Public Use
  Company Number: US-EISAI INC-E7389-04226-CLI-US

PATIENT
  Age: 51 Year
  Sex: Female
  Weight: 65 kg

DRUGS (10)
  1. HALAVEN [Suspect]
     Indication: BREAST CANCER METASTATIC
     Route: 041
     Dates: start: 20130903
  2. ALBUTEROL INHALER [Concomitant]
     Indication: WHEEZING
     Route: 055
  3. ATIVAN [Concomitant]
     Route: 048
  4. COMPAZINE [Concomitant]
     Indication: NAUSEA
     Route: 048
  5. COMPAZINE [Concomitant]
     Indication: NAUSEA
     Route: 048
  6. EFFEXOR XR [Concomitant]
     Route: 048
  7. EMLA [Concomitant]
     Indication: LOCAL ANAESTHESIA
     Route: 048
  8. MULTIVITAMINS [Concomitant]
     Route: 048
  9. VITAMIN D3 [Concomitant]
     Route: 048
  10. FISH OIL [Concomitant]
     Route: 048

REACTIONS (1)
  - Non-cardiac chest pain [Unknown]
